FAERS Safety Report 22284124 (Version 1)
Quarter: 2023Q2

REPORT INFORMATION
  Report Type: Report from Study
  Country: US (occurrence: US)
  Receive Date: 20230504
  Receipt Date: 20230504
  Transmission Date: 20230722
  Serious: Yes (Other)
  Sender: FDA-Public Use
  Company Number: US-ABBVIE-4709768

PATIENT
  Sex: Male

DRUGS (15)
  1. VENCLEXTA [Suspect]
     Active Substance: VENETOCLAX
     Indication: Acute myeloid leukaemia
     Dosage: FORM STRENGTH: 100 MILLIGRAM
     Route: 048
     Dates: start: 20230206
  2. GLIMEPIRIDE [Concomitant]
     Active Substance: GLIMEPIRIDE
     Indication: Product used for unknown indication
     Dosage: FORM STRENGTH: 2 MILLIGRAM
     Route: 048
     Dates: start: 20220321
  3. SULFAMETHOXAZOLE\TRIMETHOPRIM [Concomitant]
     Active Substance: SULFAMETHOXAZOLE\TRIMETHOPRIM
     Indication: Product used for unknown indication
     Dosage: 800-160 MG ORAL TABLET
     Route: 048
     Dates: start: 20230217
  4. METFORMIN HYDROCHLORIDE [Concomitant]
     Active Substance: METFORMIN HYDROCHLORIDE
     Indication: Product used for unknown indication
     Dosage: FORM STRENGTH: 500 MILLIGRAM
     Route: 048
     Dates: start: 20220107
  5. ATORVASTATIN CALCIUM [Concomitant]
     Active Substance: ATORVASTATIN CALCIUM
     Indication: Product used for unknown indication
     Dosage: 40 MG ORAL TABLET TAKE 1 TABLET DAILY AS DIRECTED?FORM STRENGTH: 40 MILLIGRAM
     Route: 048
     Dates: start: 20220725
  6. LIDOCAINE [Concomitant]
     Active Substance: LIDOCAINE
     Indication: Product used for unknown indication
     Dosage: 5 % EXTERNAL OINTMENT, APPLY TO AFFECTED AREA AS DIRECTED
     Route: 061
     Dates: start: 20230323
  7. FLUCONAZOLE [Concomitant]
     Active Substance: FLUCONAZOLE
     Indication: Product used for unknown indication
     Dosage: FORM STRENGTH: 200 MILLIGRAM
     Route: 048
     Dates: start: 20221229
  8. SILDENAFIL CITRATE [Concomitant]
     Active Substance: SILDENAFIL CITRATE
     Indication: Product used for unknown indication
     Dosage: TAKE 5 TABLET DAILY PRN 1 HR PRIOR TO INTERCOURSE?FORM STRENGTH: 20 MILLIGRAM
     Route: 048
     Dates: start: 20210706
  9. NYSTATIN [Concomitant]
     Active Substance: NYSTATIN
     Indication: Product used for unknown indication
     Dosage: 100000 UNIT/GM EXTERNAL CREAM?FREQUENCY TEXT: APPLY 2-3 TIMES DAILY TO AFFECTED AREA
     Route: 061
     Dates: start: 20220418
  10. ONDANSETRON [Concomitant]
     Active Substance: ONDANSETRON
     Indication: Nausea
     Dosage: TABLET DISINTEGRATING?FORM STRENGTH: 4 MILLIGRAM
     Route: 048
     Dates: start: 20230209
  11. ACYCLOVIR [Concomitant]
     Active Substance: ACYCLOVIR
     Indication: Product used for unknown indication
     Dosage: TIME INTERVAL: 0.33333333 DAYS: TAKE 1 TABLET 3 TIMES DAILY FOR 14 DAYS?FORM STRENGTH: 400 MILLIGRAM
     Route: 048
     Dates: start: 20221229
  12. NITROFURANTOIN MONOHYDRATE MACROCRYSTALS [Concomitant]
     Active Substance: NITROFURANTOIN\NITROFURANTOIN MONOHYDRATE
     Indication: Product used for unknown indication
     Dosage: FORM STRENGTH: 100 MILLIGRAM
     Route: 048
     Dates: start: 20230315
  13. DICYCLOMINE HYDROCHLORIDE [Concomitant]
     Active Substance: DICYCLOMINE HYDROCHLORIDE
     Indication: Abdominal pain
     Dosage: TIME INTERVAL: 0.33333333 DAYS: 1-2 CAPSULES TID AS NEEDED?FORM STRENGTH: 10 MILLIGRAM
     Route: 048
     Dates: start: 20220420
  14. PREDNISONE [Concomitant]
     Active Substance: PREDNISONE
     Indication: Product used for unknown indication
     Dosage: FORM STRENGTH: 10 MILLIGRAM
     Route: 048
     Dates: start: 20230116
  15. DACOGEN [Concomitant]
     Active Substance: DECITABINE
     Indication: Product used for unknown indication

REACTIONS (4)
  - Myelodysplastic syndrome with excess blasts [Unknown]
  - Pancytopenia [Unknown]
  - Neutropenia [Unknown]
  - Off label use [Unknown]
